FAERS Safety Report 4678976-7 (Version None)
Quarter: 2005Q2

REPORT INFORMATION
  Report Type: 
  Country: None (occurrence: None)
  Receive Date: 20050531
  Receipt Date: 20050525
  Transmission Date: 20051028
  Serious: Yes (Other)
  Sender: FDA-Public Use
  Company Number: A0522442A

PATIENT
  Sex: Female

DRUGS (1)
  1. THORAZINE [Suspect]
     Indication: DEPRESSION
     Dosage: 75 MG/ AT NIGHT/ ORAL
     Route: 048
     Dates: end: 20020101

REACTIONS (7)
  - BLOOD PRESSURE INCREASED [None]
  - CATARACT [None]
  - EYE DISORDER [None]
  - GLAUCOMA [None]
  - READING DISORDER [None]
  - SPEECH DISORDER [None]
  - TREMOR [None]
